FAERS Safety Report 21675249 (Version 1)
Quarter: 2022Q4

REPORT INFORMATION
  Report Type: Spontaneous
  Country: US (occurrence: US)
  Receive Date: 20221202
  Receipt Date: 20221202
  Transmission Date: 20230112
  Serious: Yes (Other)
  Sender: FDA-Public Use
  Company Number: US-APOTEX-2022AP016336

PATIENT

DRUGS (1)
  1. KETOROLAC [Suspect]
     Active Substance: KETOROLAC TROMETHAMINE
     Indication: Procedural pain
     Dosage: UNK
     Route: 042

REACTIONS (4)
  - Renal impairment [Unknown]
  - Contraindicated product administered [Unknown]
  - Product use issue [Unknown]
  - Urine output decreased [Unknown]
